FAERS Safety Report 15834604 (Version 1)
Quarter: 2019Q1

REPORT INFORMATION
  Report Type: Spontaneous
  Country: CZ (occurrence: CZ)
  Receive Date: 20190116
  Receipt Date: 20190116
  Transmission Date: 20190417
  Serious: Yes (Life-Threatening, Hospitalization, Other)
  Sender: FDA-Public Use
  Company Number: CZ-PFIZER INC-2019020967

PATIENT
  Age: 66 Year
  Sex: Female

DRUGS (15)
  1. TRITTICO AC [Concomitant]
     Active Substance: TRAZODONE HYDROCHLORIDE
     Dosage: 75 MG, 1X/DAY, IN THE EVENING
  2. FRONTIN [Concomitant]
     Active Substance: ALPRAZOLAM
     Dosage: 0.5 MG, 1X/DAY, HALF A TABLET IN THE MORNING, ONE AT LUNCHTIME, ON IN THE EVENING
  3. SORTIS [Concomitant]
     Active Substance: ATORVASTATIN
     Dosage: 80 MG, 1X/DAY, IN THE EVENING
  4. BONDRONAT [IBANDRONATE SODIUM] [Concomitant]
     Dosage: UNK UNK, 1X/DAY, ONE DOSE IN THE MORNING
  5. LETROX [Concomitant]
     Active Substance: LEVOTHYROXINE SODIUM
     Dosage: 100 UG, 1X/DAY, IN THE MORNING
  6. BETALOC [METOPROLOL SUCCINATE] [Concomitant]
     Dosage: 25 MG, 1X/DAY, HALF A TABLET IN THE MORNING
  7. INDAPAMID [Concomitant]
     Active Substance: INDAPAMIDE
     Dosage: UNK UNK, 1X/DAY, ONE DOSE IN THE MORNING
  8. COAXIL [Concomitant]
     Active Substance: TIANEPTINE SODIUM
     Dosage: UNK UNK, 2X/DAY, ONE DOSE IN THE MORNING, ONE AT LUNCHTIME
  9. INLYTA [Suspect]
     Active Substance: AXITINIB
     Indication: RENAL NEOPLASM
  10. ANOPYRIN [Concomitant]
     Active Substance: ASPIRIN
     Dosage: 100 MG, 1X/DAY IN THE MIDDLE OF THE DAY
  11. APO RABEPRAZOLE [Concomitant]
     Dosage: 20 MG, 2X/DAY, ONE IN THE MORNING, ONE IN THE EVENING
  12. TRIASYN [Concomitant]
     Dosage: UNK UNK, 2X/DAY, ONE DOSE IN THE MORNING, ONE IN THE EVENING
  13. VEROSPIRON [Concomitant]
     Active Substance: SPIRONOLACTONE
     Dosage: 50 MG, 1X/DAY IN THE MIDDLE OF THE DAY
  14. CALCICHEW D3 [Concomitant]
     Active Substance: CALCIUM\CHOLECALCIFEROL
     Dosage: UNK UNK, 1X/DAY, ONE DOSE IN THE MIDDLE OF THE DAY
  15. EZETROL [Concomitant]
     Active Substance: EZETIMIBE
     Dosage: 10 MG, 1X/DAY, ONE DOSE IN THE MORNING

REACTIONS (4)
  - Confusional state [Recovering/Resolving]
  - Fall [Recovering/Resolving]
  - Subarachnoid haemorrhage [Recovering/Resolving]
  - Exercise tolerance decreased [Unknown]

NARRATIVE: CASE EVENT DATE: 20181224
